FAERS Safety Report 18116695 (Version 1)
Quarter: 2020Q3

REPORT INFORMATION
  Report Type: Spontaneous
  Country: US (occurrence: US)
  Receive Date: 20200806
  Receipt Date: 20200806
  Transmission Date: 20201103
  Serious: No
  Sender: FDA-Public Use
  Company Number: US-AMGEN-USASP2020122841

PATIENT
  Age: 34 Year
  Sex: Female

DRUGS (1)
  1. NEUPOGEN [Suspect]
     Active Substance: FILGRASTIM
     Indication: INFERTILITY
     Dosage: UNK
     Route: 065

REACTIONS (2)
  - Product packaging quantity issue [Unknown]
  - Off label use [Unknown]

NARRATIVE: CASE EVENT DATE: 20200728
